FAERS Safety Report 9179894 (Version 3)
Quarter: 2013Q2

REPORT INFORMATION
  Report Type: Spontaneous
  Country: IT (occurrence: IT)
  Receive Date: 20130321
  Receipt Date: 20130620
  Transmission Date: 20140414
  Serious: Yes (Hospitalization)
  Sender: FDA-Public Use
  Company Number: IT-PFIZER INC-2013085565

PATIENT
  Age: 72 Year
  Sex: Male

DRUGS (6)
  1. TRIATEC [Suspect]
     Dosage: 5 MG, 1X/DAY
     Route: 048
     Dates: start: 20100101, end: 20130214
  2. LASIX [Interacting]
     Indication: HYPERTENSION
     Dosage: 25 MG, 1X/DAY
     Route: 048
     Dates: start: 20100101, end: 20130214
  3. PLAVIX [Suspect]
     Indication: ACUTE MYOCARDIAL INFARCTION
     Dosage: 75 MG, 1X/DAY
     Route: 048
     Dates: start: 20100101, end: 20130214
  4. SOTALOL [Interacting]
     Indication: HYPERTENSION
     Dosage: 1 UNIT, ONCE DAILY
     Route: 048
     Dates: start: 20100101, end: 20130214
  5. CARDIOASPIRIN [Suspect]
     Indication: ACUTE MYOCARDIAL INFARCTION
     Dosage: 100 MG, 1X/DAY
     Route: 048
     Dates: start: 20100101, end: 20130214
  6. TORVAST [Concomitant]
     Dosage: UNK
     Dates: start: 20100101, end: 20130214

REACTIONS (2)
  - Drug interaction [Unknown]
  - Presyncope [Unknown]
